FAERS Safety Report 10733118 (Version 2)
Quarter: 2015Q1

REPORT INFORMATION
  Report Type: Spontaneous
  Country: IT (occurrence: IT)
  Receive Date: 20150123
  Receipt Date: 20150130
  Transmission Date: 20150721
  Serious: No
  Sender: FDA-Public Use
  Company Number: IT-JNJFOC-20150109007

PATIENT
  Age: 54 Year
  Sex: Female

DRUGS (3)
  1. STELARA [Suspect]
     Active Substance: USTEKINUMAB
     Indication: PSORIASIS
     Route: 058
     Dates: start: 20141008, end: 20141105
  2. SEROXAT [Concomitant]
     Active Substance: PAROXETINE HYDROCHLORIDE
     Indication: PRODUCT USED FOR UNKNOWN INDICATION
     Route: 065
  3. TAVOR [Concomitant]
     Active Substance: LORAZEPAM
     Indication: PRODUCT USED FOR UNKNOWN INDICATION
     Route: 065

REACTIONS (1)
  - Supraventricular tachycardia [Recovered/Resolved]

NARRATIVE: CASE EVENT DATE: 20141015
